FAERS Safety Report 13395242 (Version 1)
Quarter: 2017Q1

REPORT INFORMATION
  Report Type: Spontaneous
  Country: US (occurrence: US)
  Receive Date: 20170331
  Receipt Date: 20170331
  Transmission Date: 20170429
  Serious: No
  Sender: FDA-Public Use
  Company Number: None

PATIENT
  Age: 44 Year
  Sex: Female
  Weight: 78.75 kg

DRUGS (3)
  1. CALCIUM [Concomitant]
     Active Substance: CALCIUM
  2. VITAMIN D3 [Concomitant]
     Active Substance: CHOLECALCIFEROL
  3. BUPROPION HCL XL 300MG [Suspect]
     Active Substance: BUPROPION HYDROCHLORIDE
     Indication: DEPRESSION
     Dosage: ?          QUANTITY:1 TABLET(S);?
     Route: 048
     Dates: start: 20161231

REACTIONS (8)
  - Dizziness [None]
  - Weight increased [None]
  - Crying [None]
  - Product substitution issue [None]
  - Headache [None]
  - Tinnitus [None]
  - Insomnia [None]
  - Affective disorder [None]

NARRATIVE: CASE EVENT DATE: 20170130
